FAERS Safety Report 15734539 (Version 1)
Quarter: 2018Q4

REPORT INFORMATION
  Report Type: Report from Study
  Country: US (occurrence: US)
  Receive Date: 20181218
  Receipt Date: 20181218
  Transmission Date: 20190205
  Serious: Yes (Other)
  Sender: FDA-Public Use
  Company Number: US-MYLANLABS-2018M1093485

PATIENT
  Age: 71 Year
  Sex: Male

DRUGS (3)
  1. LISINOPRIL. [Suspect]
     Active Substance: LISINOPRIL
     Indication: PRODUCT USED FOR UNKNOWN INDICATION
     Dosage: UNK
     Route: 048
     Dates: start: 2012, end: 2018
  2. FARXIGA [Concomitant]
     Active Substance: DAPAGLIFLOZIN PROPANEDIOL
     Dosage: UNK
  3. LENVIMA [Suspect]
     Active Substance: LENVATINIB
     Indication: THYROID CANCER
     Dosage: 14 MILLIGRAM, 1-2
     Route: 048
     Dates: start: 201808

REACTIONS (20)
  - Anxiety [Unknown]
  - Ear pain [Recovered/Resolved]
  - Dysphonia [Recovered/Resolved]
  - Upper-airway cough syndrome [Unknown]
  - Angioedema [Recovered/Resolved]
  - Oropharyngeal pain [Recovered/Resolved]
  - Constipation [Unknown]
  - Drug hypersensitivity [Recovered/Resolved]
  - Blood glucose increased [Unknown]
  - Pain [Unknown]
  - Flatulence [Unknown]
  - Heart rate increased [Recovered/Resolved]
  - Diarrhoea [Unknown]
  - Weight decreased [Recovered/Resolved]
  - Cough [Unknown]
  - Malaise [Unknown]
  - Musculoskeletal chest pain [Recovered/Resolved]
  - Fatigue [Recovered/Resolved]
  - Back pain [Unknown]
  - Throat irritation [Unknown]

NARRATIVE: CASE EVENT DATE: 2018
